FAERS Safety Report 13709621 (Version 1)
Quarter: 2017Q3

REPORT INFORMATION
  Report Type: Spontaneous
  Country: GB (occurrence: GB)
  Receive Date: 20170703
  Receipt Date: 20170703
  Transmission Date: 20171127
  Serious: Yes (Other)
  Sender: FDA-Public Use
  Company Number: GB-ACCORD-053095

PATIENT
  Age: 27 Year
  Sex: Female

DRUGS (4)
  1. TACROLIMUS. [Suspect]
     Active Substance: TACROLIMUS
     Indication: ANTISYNTHETASE SYNDROME
  2. METHOTREXATE. [Concomitant]
     Active Substance: METHOTREXATE
     Indication: ANTISYNTHETASE SYNDROME
     Route: 058
  3. PREDNISOLONE. [Concomitant]
     Active Substance: PREDNISOLONE
     Indication: ANTISYNTHETASE SYNDROME
     Dosage: VARIABLE DOSE
  4. MYFORTIC [Concomitant]
     Active Substance: MYCOPHENOLATE SODIUM
     Indication: ANTISYNTHETASE SYNDROME

REACTIONS (4)
  - Rash pruritic [Unknown]
  - Off label use [Unknown]
  - Swelling face [Unknown]
  - Hypersensitivity [Unknown]
